FAERS Safety Report 6651762-4 (Version None)
Quarter: 2010Q1

REPORT INFORMATION
  Report Type: 
  Country: None (occurrence: None)
  Receive Date: 20100325
  Receipt Date: 20100311
  Transmission Date: 20100710
  Serious: Yes (Other)
  Sender: FDA-Public Use
  Company Number: US-CELGENEUS-163-21880-10020955

PATIENT
  Sex: Female
  Weight: 150 kg

DRUGS (27)
  1. REVLIMID [Suspect]
     Indication: MULTIPLE MYELOMA
     Route: 048
     Dates: start: 20091001
  2. DECADRON [Concomitant]
     Indication: MULTIPLE MYELOMA
     Route: 065
     Dates: start: 20091001
  3. OXYGEN [Concomitant]
     Indication: DRUG USE FOR UNKNOWN INDICATION
     Dosage: 0.5-1 LITRE
     Route: 045
  4. LASIX [Concomitant]
     Indication: DRUG USE FOR UNKNOWN INDICATION
     Dosage: 120 MG
     Route: 065
  5. LASIX [Concomitant]
     Dosage: 80 MG
     Route: 065
  6. NYSTATIN [Concomitant]
     Indication: DRUG USE FOR UNKNOWN INDICATION
  7. POTASSIUM [Concomitant]
     Indication: DRUG USE FOR UNKNOWN INDICATION
     Route: 065
  8. COLACE [Concomitant]
     Indication: DRUG USE FOR UNKNOWN INDICATION
     Route: 048
  9. ADVAIR DISKUS 100/50 [Concomitant]
     Indication: DRUG USE FOR UNKNOWN INDICATION
     Dosage: 250/50
     Route: 055
  10. FOLIC ACID [Concomitant]
     Indication: DRUG USE FOR UNKNOWN INDICATION
     Route: 065
  11. FERROUS SULFATE TAB [Concomitant]
     Indication: DRUG USE FOR UNKNOWN INDICATION
     Route: 065
  12. VENLAFAXINE [Concomitant]
     Indication: DRUG USE FOR UNKNOWN INDICATION
     Route: 065
  13. MIRALAX [Concomitant]
     Indication: DRUG USE FOR UNKNOWN INDICATION
     Route: 065
  14. ATARAX [Concomitant]
     Indication: DRUG USE FOR UNKNOWN INDICATION
     Route: 065
  15. METROGEL [Concomitant]
     Route: 065
  16. ALBUTEROL [Concomitant]
     Indication: WHEEZING
     Route: 065
  17. PRO-STAT [Concomitant]
     Indication: SUPPLEMENTATION THERAPY
     Route: 065
  18. KENALOG [Concomitant]
     Indication: DRUG USE FOR UNKNOWN INDICATION
     Route: 061
  19. PROMETHAZINE [Concomitant]
     Indication: NAUSEA
     Route: 065
  20. PRILOSEC [Concomitant]
     Indication: DRUG USE FOR UNKNOWN INDICATION
     Route: 065
  21. SENNA [Concomitant]
     Indication: DRUG USE FOR UNKNOWN INDICATION
     Route: 048
  22. MORPHINE SULFATE [Concomitant]
     Indication: PAIN
     Route: 065
  23. ZOMETA [Concomitant]
     Indication: DRUG USE FOR UNKNOWN INDICATION
     Route: 065
  24. AUGMENTIN [Concomitant]
     Route: 065
  25. DARVON [Concomitant]
     Indication: PAIN
     Route: 065
  26. FLU VACCINE [Concomitant]
     Indication: DRUG USE FOR UNKNOWN INDICATION
     Route: 065
     Dates: start: 20100208, end: 20100208
  27. TAMIFLU [Concomitant]
     Indication: DRUG USE FOR UNKNOWN INDICATION
     Route: 065
     Dates: start: 20100201

REACTIONS (3)
  - ELECTROCARDIOGRAM QT PROLONGED [None]
  - PAIN IN JAW [None]
  - PNEUMONIA [None]
